FAERS Safety Report 9678007 (Version 1)
Quarter: 2013Q4

REPORT INFORMATION
  Report Type: Spontaneous
  Country: US (occurrence: US)
  Receive Date: 20131108
  Receipt Date: 20131108
  Transmission Date: 20140711
  Serious: No
  Sender: FDA-Public Use
  Company Number: US-BAYER-2013-133835

PATIENT
  Sex: Female

DRUGS (1)
  1. MIRENA [Suspect]
     Indication: CONTRACEPTION
     Dosage: 20 MCG/24HR, CONT
     Route: 015
     Dates: start: 201206, end: 201308

REACTIONS (7)
  - Abdominal pain lower [None]
  - Back pain [None]
  - Abdominal distension [None]
  - Migraine [None]
  - Mood swings [None]
  - Depression [None]
  - Uterine enlargement [None]
